FAERS Safety Report 9239788 (Version 20)
Quarter: 2016Q2

REPORT INFORMATION
  Report Type: Report from Study
  Country: CA (occurrence: CA)
  Receive Date: 20130418
  Receipt Date: 20160413
  Transmission Date: 20160815
  Serious: Yes (Other)
  Sender: FDA-Public Use
  Company Number: CA-INCYTE CORPORATION-2012IN002211

PATIENT
  Age: 75 Year
  Sex: Female
  Weight: 53.6 kg

DRUGS (21)
  1. INMUNOGLOBULIN G [Concomitant]
     Indication: PRODUCT USED FOR UNKNOWN INDICATION
     Dosage: UNK
     Route: 042
  2. JAKAFI [Suspect]
     Active Substance: RUXOLITINIB
     Dosage: 10 MG, BID
     Route: 048
     Dates: start: 20121204
  3. JAKAFI [Suspect]
     Active Substance: RUXOLITINIB
     Dosage: 20 MG, BID
     Route: 048
  4. INMUNOGLOBULIN G [Concomitant]
     Dosage: EVERY 28 DAYS
  5. IBUPROFEN. [Concomitant]
     Active Substance: IBUPROFEN
     Route: 065
  6. GAMMA GLOBULIN [Concomitant]
     Active Substance: IMMUNE GLOBULIN NOS
     Indication: IMMUNE SYSTEM DISORDER
     Dosage: EVERY 28 DAYS
     Route: 065
  7. JAKAFI [Suspect]
     Active Substance: RUXOLITINIB
     Dosage: 10 MG, BID
     Route: 048
     Dates: start: 20121105
  8. CLINDAMYCIN [Concomitant]
     Active Substance: CLINDAMYCIN\CLINDAMYCIN PHOSPHATE
     Route: 065
  9. TYLENOL [Concomitant]
     Active Substance: ACETAMINOPHEN
     Indication: PRODUCT USED FOR UNKNOWN INDICATION
     Dosage: UNK
  10. IBUPROFEN. [Concomitant]
     Active Substance: IBUPROFEN
     Indication: PRODUCT USED FOR UNKNOWN INDICATION
     Dosage: UNK
  11. JAKAFI [Suspect]
     Active Substance: RUXOLITINIB
     Indication: MYELOFIBROSIS
     Dosage: 20 MG, BID
     Route: 048
     Dates: start: 20121019
  12. JAKAFI [Suspect]
     Active Substance: RUXOLITINIB
     Dosage: 5 MG, BID
     Route: 048
     Dates: start: 20121113
  13. TYLENOL [Concomitant]
     Active Substance: ACETAMINOPHEN
     Dosage: PRN
     Route: 065
  14. FENTANYL. [Concomitant]
     Active Substance: FENTANYL
     Indication: PAIN IN EXTREMITY
     Dosage: UNK
  15. REFLUX [Concomitant]
     Active Substance: METHENAMINE MANDELATE
     Indication: GASTROOESOPHAGEAL REFLUX DISEASE
     Route: 065
  16. JAKAFI [Suspect]
     Active Substance: RUXOLITINIB
     Dosage: 10 MG, BID
     Route: 048
  17. CLINDAMYCIN [Concomitant]
     Active Substance: CLINDAMYCIN\CLINDAMYCIN PHOSPHATE
     Indication: PRODUCT USED FOR UNKNOWN INDICATION
     Dosage: UNK
  18. JAKAFI [Suspect]
     Active Substance: RUXOLITINIB
     Dosage: 15 MG, BID
     Route: 048
  19. JAKAFI [Suspect]
     Active Substance: RUXOLITINIB
     Dosage: 20 MG, BID
     Route: 048
  20. FENTANYL. [Concomitant]
     Active Substance: FENTANYL
     Route: 065
  21. GAMMA GLOBULIN [Concomitant]
     Active Substance: IMMUNE GLOBULIN NOS
     Indication: GASTROOESOPHAGEAL REFLUX DISEASE
     Dosage: UNK
     Route: 065

REACTIONS (62)
  - Pneumonia [Unknown]
  - Breast enlargement [Unknown]
  - Muscle spasms [Unknown]
  - Diarrhoea [Unknown]
  - Soft tissue disorder [Unknown]
  - Night sweats [Unknown]
  - Arthropod bite [Unknown]
  - Haemorrhage [Unknown]
  - Eyelid injury [Unknown]
  - Breast discharge [Unknown]
  - Lower limb fracture [Unknown]
  - Fall [Unknown]
  - Vomiting [Unknown]
  - Urinary incontinence [Unknown]
  - Nausea [Unknown]
  - Anger [Unknown]
  - Abdominal pain upper [Unknown]
  - Skin ulcer [Recovering/Resolving]
  - Increased appetite [Unknown]
  - Hepatic steatosis [Unknown]
  - Pollakiuria [Recovered/Resolved]
  - Cardiovascular insufficiency [Unknown]
  - Swelling [Unknown]
  - Arthropathy [Unknown]
  - Renal cyst [Unknown]
  - Tibia fracture [Unknown]
  - Dyspnoea [Unknown]
  - Oxygen saturation decreased [Unknown]
  - Weight decreased [Unknown]
  - Fatigue [Unknown]
  - White blood cell count increased [Unknown]
  - Stress [Unknown]
  - Platelet count decreased [Unknown]
  - Weight increased [Not Recovered/Not Resolved]
  - Sinus congestion [Unknown]
  - Burning sensation [Unknown]
  - Poor peripheral circulation [Unknown]
  - Blepharal pigmentation [Unknown]
  - Hip fracture [Unknown]
  - Femur fracture [Unknown]
  - Movement disorder [Unknown]
  - Sudden onset of sleep [Unknown]
  - Joint injury [Unknown]
  - Limb injury [Unknown]
  - Accident [Unknown]
  - Nasopharyngitis [Unknown]
  - Peripheral coldness [Unknown]
  - Feeling hot [Unknown]
  - Pruritus [Unknown]
  - Gait disturbance [Unknown]
  - Faeces pale [Unknown]
  - Splenomegaly [Unknown]
  - Dizziness [Unknown]
  - Paraesthesia [Unknown]
  - Skin discolouration [Unknown]
  - Rotator cuff syndrome [Unknown]
  - Platelet disorder [Unknown]
  - Full blood count decreased [Unknown]
  - Gastrooesophageal reflux disease [Unknown]
  - Immune system disorder [Unknown]
  - Eye pain [Unknown]
  - Head discomfort [Unknown]

NARRATIVE: CASE EVENT DATE: 201210
